FAERS Safety Report 9496431 (Version 1)
Quarter: 2013Q3

REPORT INFORMATION
  Report Type: Spontaneous
  Country: US (occurrence: None)
  Receive Date: 20130829
  Receipt Date: 20130829
  Transmission Date: 20140515
  Serious: Yes (Hospitalization)
  Sender: FDA-Public Use
  Company Number: UTC-037050

PATIENT
  Age: 54 Year
  Sex: Female
  Weight: 42 kg

DRUGS (1)
  1. REMODULIN [Suspect]
     Indication: PULMONARY ARTERIAL HYPERTENSION
     Dosage: 97.92 UG/KG (0.068 UG/KG,1 IN 1 MIN),SUBCUTANEOUS
     Route: 058
     Dates: start: 20130613

REACTIONS (4)
  - Nausea [None]
  - Vomiting [None]
  - Hypotension [None]
  - Weight decreased [None]
